FAERS Safety Report 10399545 (Version 1)
Quarter: 2014Q3

REPORT INFORMATION
  Report Type: Spontaneous
  Country: US (occurrence: None)
  Receive Date: 20140818
  Receipt Date: 20140818
  Transmission Date: 20150326
  Serious: Yes (Other)
  Sender: FDA-Public Use
  Company Number: None

PATIENT
  Age: 75 Year
  Sex: Female
  Weight: 113.4 kg

DRUGS (1)
  1. SYMBICORT [Suspect]
     Active Substance: BUDESONIDE\FORMOTEROL FUMARATE DIHYDRATE
     Indication: ASTHMA
     Dosage: 2 PUFFS 2TIMES A DAY TWICE DAILY INHALATION
     Route: 055
     Dates: start: 20140201, end: 20140801

REACTIONS (2)
  - Supernumerary nipple [None]
  - Cough [None]

NARRATIVE: CASE EVENT DATE: 20140201
